FAERS Safety Report 26143464 (Version 1)
Quarter: 2025Q4

REPORT INFORMATION
  Report Type: Spontaneous
  Country: EU (occurrence: EU)
  Receive Date: 20251211
  Receipt Date: 20251211
  Transmission Date: 20260117
  Serious: Yes (Hospitalization, Other)
  Sender: AUROBINDO
  Company Number: EU-AFSSAPS-RS2025001146

PATIENT
  Age: 71 Year
  Sex: Male
  Weight: 73 kg

DRUGS (9)
  1. CETIRIZINE HYDROCHLORIDE [Suspect]
     Active Substance: CETIRIZINE HYDROCHLORIDE
     Indication: Plasma cell myeloma
     Dosage: 10 MILLIGRAM, EVERY WEEK
     Dates: start: 20250908, end: 20251117
  2. AMOXICILLIN [Suspect]
     Active Substance: AMOXICILLIN
     Indication: Plasma cell myeloma
     Dosage: 1 GRAM, ONCE A DAY
     Dates: start: 20250908, end: 20251117
  3. VALACYCLOVIR HYDROCHLORIDE [Suspect]
     Active Substance: VALACYCLOVIR HYDROCHLORIDE
     Indication: Plasma cell myeloma
     Dosage: 1 GRAM, ONCE A DAY
     Dates: start: 20250908, end: 20251117
  4. BACTRIM [Suspect]
     Active Substance: SULFAMETHOXAZOLE\TRIMETHOPRIM
     Indication: Plasma cell myeloma
     Dosage: LES LUNDIS, MERCREDIS, VENDREDI
     Dates: start: 20250908, end: 20251110
  5. REVLIMID [Suspect]
     Active Substance: LENALIDOMIDE
     Indication: Plasma cell myeloma
     Dosage: 25 MILLIGRAM, ONCE A DAY
     Dates: start: 20250908, end: 20251117
  6. VELCADE [Suspect]
     Active Substance: BORTEZOMIB
     Indication: Plasma cell myeloma
     Dosage: 1 DOSAGE FORM, EVERY WEEK
     Dates: start: 20250908, end: 20251110
  7. DARZALEX [Suspect]
     Active Substance: DARATUMUMAB
     Indication: Plasma cell myeloma
     Dosage: 1 DOSAGE FORM, EVERY WEEK
     Dates: start: 20250908, end: 20251103
  8. DEXAMETHASONE [Suspect]
     Active Substance: DEXAMETHASONE
     Indication: Plasma cell myeloma
     Dosage: 1 DOSAGE FORM, EVERY WEEK
     Dates: start: 20250908, end: 20251117
  9. ELIQUIS [Suspect]
     Active Substance: APIXABAN
     Indication: Plasma cell myeloma
     Dosage: 5 MILLIGRAM, ONCE A DAY
     Dates: start: 20250908, end: 20251117

REACTIONS (1)
  - Drug reaction with eosinophilia and systemic symptoms [Not Recovered/Not Resolved]

NARRATIVE: CASE EVENT DATE: 20251107
